FAERS Safety Report 6147930-0 (Version None)
Quarter: 2009Q2

REPORT INFORMATION
  Report Type: 
  Country: None (occurrence: None)
  Receive Date: 20090408
  Receipt Date: 20090405
  Transmission Date: 20091009
  Serious: Yes (Death, Hospitalization)
  Sender: FDA-Public Use
  Company Number: PHHY2009EG12937

PATIENT
  Age: 50 Year
  Sex: Female
  Weight: 75 kg

DRUGS (5)
  1. ACLASTA [Suspect]
     Dosage: UNK
  2. LYRICA [Interacting]
     Indication: NEPHROPATHY
     Dosage: 75 MG, BID
     Route: 048
  3. FLOTAC [Concomitant]
     Dosage: 75 MG
  4. CONTROLOC [Concomitant]
     Dosage: 20 MG
  5. MULTI-RELAX [Concomitant]

REACTIONS (5)
  - COMA [None]
  - DEPRESSED LEVEL OF CONSCIOUSNESS [None]
  - DRUG INTERACTION [None]
  - HYPERTENSION [None]
  - OEDEMA PERIPHERAL [None]
